FAERS Safety Report 4430224-9 (Version None)
Quarter: 2004Q3

REPORT INFORMATION
  Report Type: 
  Country: None (occurrence: None)
  Receive Date: 20040820
  Receipt Date: 20040811
  Transmission Date: 20050211
  Serious: Yes (Death, Hospitalization)
  Sender: FDA-Public Use
  Company Number: FR-BRISTOL-MYERS SQUIBB COMPANY-12668364

PATIENT
  Age: 76 Year
  Sex: Male

DRUGS (2)
  1. APROVEL TABS [Suspect]
     Route: 048
     Dates: end: 20040606
  2. ALDALIX [Suspect]
     Route: 048
     Dates: start: 20040518, end: 20040606

REACTIONS (4)
  - BLOOD CREATINE PHOSPHOKINASE INCREASED [None]
  - ELECTROCARDIOGRAM ABNORMAL [None]
  - HYPERKALAEMIA [None]
  - MUSCULAR WEAKNESS [None]
